FAERS Safety Report 7101776-5 (Version None)
Quarter: 2010Q4

REPORT INFORMATION
  Report Type: 
  Country: None (occurrence: None)
  Receive Date: 20101115
  Receipt Date: 20101103
  Transmission Date: 20110411
  Serious: Yes (Death, Other)
  Sender: FDA-Public Use
  Company Number: GB-JNJFOC-20100801157

PATIENT
  Sex: Male
  Weight: 59 kg

DRUGS (12)
  1. REMICADE [Suspect]
     Indication: CROHN'S DISEASE
     Route: 042
  2. CITALOPRAM [Concomitant]
     Indication: PSYCHOTIC DISORDER
  3. CHLORPROMAZINE [Concomitant]
     Indication: PSYCHOTIC DISORDER
  4. OMEPRAZOLE [Concomitant]
     Indication: DYSPEPSIA
  5. NITROGLYCERIN [Concomitant]
     Indication: MYOCARDIAL ISCHAEMIA
  6. AZOTHIOPRINE [Concomitant]
  7. UNKNOWN MEDICATION [Concomitant]
  8. ASPIRIN [Concomitant]
  9. CYCLIZINE [Concomitant]
  10. SANDO K [Concomitant]
  11. CARBOCISTEINE [Concomitant]
  12. MAGNESIUM HYDROXIDE [Concomitant]

REACTIONS (5)
  - CROHN'S DISEASE [None]
  - DISSEMINATED TUBERCULOSIS [None]
  - LOWER RESPIRATORY TRACT INFECTION [None]
  - MYOCARDIAL ISCHAEMIA [None]
  - SEPTIC SHOCK [None]
